FAERS Safety Report 5943654-0 (Version None)
Quarter: 2008Q4

REPORT INFORMATION
  Report Type: 
  Country: None (occurrence: None)
  Receive Date: 20081106
  Receipt Date: 20081028
  Transmission Date: 20090506
  Serious: Yes (Death, Other)
  Sender: FDA-Public Use
  Company Number: JP-PFIZER INC-2008067144

PATIENT
  Sex: Male

DRUGS (10)
  1. SU-011,248 [Suspect]
     Indication: RENAL CELL CARCINOMA
     Dosage: DAILY DOSE:50MG
     Route: 048
     Dates: start: 20080714
  2. SU-011,248 [Suspect]
     Dosage: DAILY DOSE:37.5MG
     Route: 048
     Dates: start: 20080729, end: 20080731
  3. MAGNESIUM OXIDE [Concomitant]
     Route: 048
     Dates: end: 20080803
  4. AMOBAN [Concomitant]
     Route: 048
     Dates: end: 20080803
  5. MYSLEE [Concomitant]
     Route: 048
     Dates: end: 20080803
  6. LOXOPROFEN SODIUM [Concomitant]
     Route: 048
     Dates: end: 20080803
  7. OXYCONTIN [Concomitant]
     Route: 048
     Dates: end: 20080803
  8. DEPAKENE [Concomitant]
     Route: 048
     Dates: end: 20080730
  9. FAMOTIDINE [Concomitant]
     Route: 048
     Dates: end: 20080730
  10. NAIXAN [Concomitant]
     Route: 048
     Dates: end: 20080730

REACTIONS (2)
  - BONE MARROW FAILURE [None]
  - DISSEMINATED INTRAVASCULAR COAGULATION [None]
